FAERS Safety Report 9745373 (Version 3)
Quarter: 2013Q4

REPORT INFORMATION
  Report Type: Spontaneous
  Country: US (occurrence: US)
  Receive Date: 20131211
  Receipt Date: 20131226
  Transmission Date: 20140711
  Serious: Yes (Hospitalization, Other)
  Sender: FDA-Public Use
  Company Number: PHEH2013US025094

PATIENT
  Age: 85 Year
  Sex: Male

DRUGS (2)
  1. EXELON PATCH [Suspect]
     Dosage: UNK UKN, UNK
     Route: 062
  2. EXELON PATCH [Suspect]
     Dosage: 12 PATCHES ON HIS BODY
     Route: 062

REACTIONS (7)
  - Loss of consciousness [Unknown]
  - Fall [Unknown]
  - Urinary tract infection [Unknown]
  - Overdose [Unknown]
  - Abasia [Unknown]
  - Orthostatic hypotension [Unknown]
  - Drug administration error [Unknown]
